FAERS Safety Report 25705217 (Version 1)
Quarter: 2025Q3

REPORT INFORMATION
  Report Type: Spontaneous
  Country: US (occurrence: None)
  Receive Date: 20250819
  Receipt Date: 20250819
  Transmission Date: 20251021
  Serious: Yes (Hospitalization)
  Sender: FDA-CTU
  Company Number: None

PATIENT
  Sex: Male

DRUGS (11)
  1. FEIBA [Suspect]
     Active Substance: ANTI-INHIBITOR COAGULANT COMPLEX
     Indication: Factor VIII deficiency
     Dosage: INFUSE 1753 UNITS (1 VIAL EACH OF 616 IU AND 1137 IU) INTRAVENOUSLY EVERY DAY AS DIRECTED
     Route: 042
     Dates: start: 20200904
  2. ALBUTEROL SULFATE [Concomitant]
     Active Substance: ALBUTEROL SULFATE
  3. AMINOCAPROIC SOL [Concomitant]
  4. AMOXICILLIN SUS [Concomitant]
  5. CETIRIZINE SOL [Concomitant]
  6. CIPRODEX SUS [Concomitant]
  7. FEIBA [Concomitant]
     Active Substance: ANTI-INHIBITOR COAGULANT COMPLEX
  8. FLOVENT HFA [Concomitant]
     Active Substance: FLUTICASONE PROPIONATE
  9. LORATADINE [Concomitant]
     Active Substance: LORATADINE
  10. OXYCODONE [Concomitant]
     Active Substance: OXYCODONE
  11. POLYETHYLENE GLYCOL 3350 [Concomitant]
     Active Substance: POLYETHYLENE GLYCOL 3350

REACTIONS (1)
  - Haemorrhage [None]
